FAERS Safety Report 8182124-9 (Version None)
Quarter: 2012Q1

REPORT INFORMATION
  Report Type: 
  Country: None (occurrence: None)
  Receive Date: 20120302
  Receipt Date: 20120223
  Transmission Date: 20120608
  Serious: Yes (Hospitalization, Other)
  Sender: FDA-Public Use
  Company Number: PL-ROXANE LABORATORIES, INC.-2012-RO-00722RO

PATIENT
  Age: 12 Year
  Sex: Female

DRUGS (4)
  1. CLARITHROMYCIN [Suspect]
     Indication: BRONCHITIS
  2. PREDNISONE TAB [Suspect]
     Indication: NEPHROTIC SYNDROME
  3. CYCLOSPORINE [Suspect]
     Indication: NEPHROTIC SYNDROME
  4. AZATHIOPRINE [Suspect]
     Indication: NEPHROTIC SYNDROME

REACTIONS (4)
  - RENAL FAILURE ACUTE [None]
  - NEPHROTIC SYNDROME [None]
  - BRONCHITIS [None]
  - DRUG LEVEL ABOVE THERAPEUTIC [None]
